FAERS Safety Report 7058174-2 (Version None)
Quarter: 2010Q4

REPORT INFORMATION
  Report Type: 
  Country: None (occurrence: None)
  Receive Date: 20101022
  Receipt Date: 20101013
  Transmission Date: 20110411
  Serious: Yes (Hospitalization)
  Sender: FDA-Public Use
  Company Number: DE-WATSON-2010-12601

PATIENT
  Age: 86 Year
  Sex: Male
  Weight: 65 kg

DRUGS (8)
  1. AMLODIPINE BESYLATE [Suspect]
     Indication: HYPERTENSION
     Dosage: 5 MG, UNKNOWN
     Route: 048
     Dates: start: 20070101, end: 20080727
  2. TAVANIC [Suspect]
     Indication: URINARY TRACT INFECTION
     Dosage: 250 MG, UNKNOWN
     Route: 048
     Dates: start: 20080721, end: 20080803
  3. BISOPROLOL [Suspect]
     Indication: HYPERTENSION
     Dosage: 2 1/2 MG, UNKNOWN
     Route: 048
     Dates: start: 20070101, end: 20070727
  4. ENALAPRIL MALEATE [Suspect]
     Indication: HYPERTENSION
     Dosage: 5 MG, UNKNOWN
     Route: 048
     Dates: start: 20080401, end: 20080729
  5. XIPAMIDE [Suspect]
     Indication: CARDIAC FAILURE
     Dosage: 20 MG, UNKNOWN
     Route: 048
     Dates: start: 20080401, end: 20080727
  6. CETIRIZINE HCL [Concomitant]
     Indication: PRODUCT USED FOR UNKNOWN INDICATION
     Dosage: 10 MG, UNKNOWN
     Route: 048
     Dates: end: 20080727
  7. NOVALGIN                           /00039504/ [Concomitant]
     Indication: TUMOUR PAIN
     Dosage: 30 GTT, UNKNOWN
     Route: 048
     Dates: start: 20080401
  8. ASPIRIN [Concomitant]
     Indication: CORONARY ARTERY DISEASE
     Dosage: 300 MG, UNKNOWN
     Route: 048
     Dates: start: 20070101

REACTIONS (4)
  - BRADYARRHYTHMIA [None]
  - DEHYDRATION [None]
  - HYPOTENSION [None]
  - RENAL FAILURE ACUTE [None]
